FAERS Safety Report 24058026 (Version 3)
Quarter: 2024Q4

REPORT INFORMATION
  Report Type: Spontaneous
  Country: DE (occurrence: DE)
  Receive Date: 20240707
  Receipt Date: 20241103
  Transmission Date: 20250114
  Serious: Yes (Life-Threatening, Other)
  Sender: JOHNSON AND JOHNSON
  Company Number: DE-PEI-202400014683

PATIENT
  Age: 17 Year
  Sex: Female
  Weight: 62 kg

DRUGS (1)
  1. STELARA [Suspect]
     Active Substance: USTEKINUMAB
     Indication: Crohn^s disease
     Route: 058
     Dates: start: 202305, end: 20240118

REACTIONS (1)
  - Acute lymphocytic leukaemia [Not Recovered/Not Resolved]
